FAERS Safety Report 8769034 (Version 1)
Quarter: 2012Q4

REPORT INFORMATION
  Report Type: 
  Country: US (occurrence: US)
  Receive Date: 20120904
  Receipt Date: 20120904
  Transmission Date: 20130627
  Serious: No
  Sender: FDA-Public Use
  Company Number: US-AMGEN-USASP2012048180

PATIENT
  Sex: Female

DRUGS (3)
  1. ENBREL [Suspect]
     Indication: FIBROMYALGIA
     Dosage: 50 mg, qwk
     Dates: start: 20110706
  2. ENBREL [Suspect]
     Indication: PSORIATIC ARTHROPATHY
  3. METHOTREXATE [Concomitant]
     Dosage: UNK

REACTIONS (1)
  - Nausea [Recovered/Resolved]
